FAERS Safety Report 6568893-X (Version None)
Quarter: 2010Q1

REPORT INFORMATION
  Report Type: 
  Country: None (occurrence: None)
  Receive Date: 20100203
  Receipt Date: 20100126
  Transmission Date: 20100710
  Serious: No
  Sender: FDA-Public Use
  Company Number: US-B.I. PHARMACEUTICALS,INC./RIDGEFIELD-2010-BP-01016BP

PATIENT
  Sex: Female

DRUGS (5)
  1. SPIRIVA [Suspect]
     Indication: CHRONIC OBSTRUCTIVE PULMONARY DISEASE
     Dosage: 18 MCG
     Route: 055
     Dates: start: 20070101, end: 20100122
  2. PROZAC [Concomitant]
     Indication: DEPRESSION
     Dates: start: 20020101
  3. CELEBREX [Concomitant]
     Indication: ARTHRITIS
     Dates: start: 20070101
  4. XANAX [Concomitant]
     Indication: IRRITABLE BOWEL SYNDROME
     Dates: start: 20070101
  5. ACTONEL [Concomitant]
     Indication: OSTEOPOROSIS
     Dates: start: 20070101

REACTIONS (1)
  - DYSPNOEA [None]
